FAERS Safety Report 20429565 (Version 1)
Quarter: 2022Q1

REPORT INFORMATION
  Report Type: Spontaneous
  Country: FR (occurrence: FR)
  Receive Date: 20220204
  Receipt Date: 20220204
  Transmission Date: 20220423
  Serious: Yes (Hospitalization)
  Sender: FDA-Public Use
  Company Number: FR-AFSSAPS-CN20182033

PATIENT
  Age: 87 Year
  Sex: Male
  Weight: 96 kg

DRUGS (3)
  1. BUDESONIDE [Suspect]
     Active Substance: BUDESONIDE
     Indication: Bronchitis
     Dosage: 2 DOSAGE FORM, DAILY (1 ML/2ML : 1-0-1)
     Route: 055
     Dates: start: 20181026, end: 20181105
  2. ALBUTEROL [Suspect]
     Active Substance: ALBUTEROL
     Indication: Bronchitis
     Dosage: 2 DOSAGE FORM, DAILY (1.25 ML/12.5 ML : 1-0-1)
     Route: 055
     Dates: start: 20181026, end: 20181105
  3. PRISTINAMYCIN [Suspect]
     Active Substance: PRISTINAMYCIN
     Indication: Bronchitis
     Dosage: 2000 MILLIGRAM, DAILY (2-0-2)
     Route: 048
     Dates: start: 20181026, end: 20181105

REACTIONS (2)
  - Thermal burn [Not Recovered/Not Resolved]
  - Plantar erythema [Not Recovered/Not Resolved]

NARRATIVE: CASE EVENT DATE: 20181105
